FAERS Safety Report 20860214 (Version 5)
Quarter: 2024Q1

REPORT INFORMATION
  Report Type: Spontaneous
  Country: JP (occurrence: JP)
  Receive Date: 20220523
  Receipt Date: 20240307
  Transmission Date: 20240410
  Serious: Yes (Other)
  Sender: FDA-Public Use
  Company Number: JP-002147023-NVSJ2022JP090046

PATIENT
  Age: 50 Year
  Sex: Male

DRUGS (7)
  1. XOLAIR [Suspect]
     Active Substance: OMALIZUMAB
     Indication: Asthma
     Route: 058
     Dates: start: 20191118, end: 20201223
  2. PREDONINE [Suspect]
     Active Substance: PREDNISOLONE
     Indication: Product used for unknown indication
     Route: 048
  3. PREDONINE [Suspect]
     Active Substance: PREDNISOLONE
     Dosage: 4 MG,DOSE REDUCED
     Route: 048
  4. PREDONINE [Suspect]
     Active Substance: PREDNISOLONE
     Dosage: 8 MG,DOSE INCREASED
     Route: 048
  5. PREDONINE [Suspect]
     Active Substance: PREDNISOLONE
     Route: 048
  6. PREDONINE [Suspect]
     Active Substance: PREDNISOLONE
     Route: 048
  7. PREDONINE [Suspect]
     Active Substance: PREDNISOLONE
     Route: 048

REACTIONS (1)
  - Encephalitis [Recovered/Resolved]

NARRATIVE: CASE EVENT DATE: 20210121
